FAERS Safety Report 20915966 (Version 1)
Quarter: 2022Q2

REPORT INFORMATION
  Report Type: Spontaneous
  Country: US (occurrence: US)
  Receive Date: 20220604
  Receipt Date: 20220604
  Transmission Date: 20220721
  Serious: No
  Sender: FDA-Public Use
  Company Number: US-SA-SAC20220530000302

PATIENT
  Sex: Female

DRUGS (2)
  1. KEVZARA [Suspect]
     Active Substance: SARILUMAB
     Indication: Rheumatoid arthritis
     Dosage: 1 DF, QOW
     Route: 058
  2. ACTEMRA [Concomitant]
     Active Substance: TOCILIZUMAB

REACTIONS (1)
  - Drug ineffective [Unknown]
